FAERS Safety Report 18096117 (Version 1)
Quarter: 2020Q3

REPORT INFORMATION
  Report Type: Spontaneous
  Country: JP (occurrence: JP)
  Receive Date: 20200730
  Receipt Date: 20200730
  Transmission Date: 20201103
  Serious: Yes (Other)
  Sender: FDA-Public Use
  Company Number: JP-SYNEX-T202003784

PATIENT
  Weight: 1 kg

DRUGS (2)
  1. INOFLO [Suspect]
     Active Substance: NITRIC OXIDE
     Indication: NEONATAL RESPIRATORY DISTRESS SYNDROME
     Dosage: UNK (INHALATION)
     Route: 055
  2. INOFLO [Suspect]
     Active Substance: NITRIC OXIDE
     Indication: NEWBORN PERSISTENT PULMONARY HYPERTENSION

REACTIONS (4)
  - Cerebral haemorrhage [Recovering/Resolving]
  - Product use issue [Unknown]
  - Patent ductus arteriosus [Recovering/Resolving]
  - Pulmonary haemorrhage [Recovering/Resolving]
